FAERS Safety Report 6023926-4 (Version None)
Quarter: 2008Q4

REPORT INFORMATION
  Report Type: 
  Country: None (occurrence: None)
  Receive Date: 20081230
  Receipt Date: 20081209
  Transmission Date: 20090506
  Serious: No
  Sender: FDA-Public Use
  Company Number: US-B.I. PHARMACEUTICALS,INC./RIDGEFIELD-2008-BP-18470BP

PATIENT
  Sex: Female

DRUGS (9)
  1. SPIRIVA [Suspect]
     Indication: CHRONIC OBSTRUCTIVE PULMONARY DISEASE
     Dosage: 18MCG
     Route: 055
     Dates: start: 20080702
  2. ADVAIR DISKUS 250/50 [Concomitant]
     Indication: CHRONIC OBSTRUCTIVE PULMONARY DISEASE
     Route: 055
  3. PERIOSTAT [Concomitant]
     Indication: GINGIVAL DISORDER
     Route: 048
  4. MULTI-VITAMIN [Concomitant]
     Indication: PROPHYLAXIS
     Route: 048
  5. CALCIUM CITRATE [Concomitant]
     Indication: PROPHYLAXIS
     Route: 048
  6. VYTORIN [Concomitant]
     Indication: BLOOD CHOLESTEROL INCREASED
  7. REQUIP [Concomitant]
     Indication: RESTLESS LEGS SYNDROME
  8. SYNTHROID [Concomitant]
     Indication: THYROID DISORDER
  9. ASPIRIN [Concomitant]
     Indication: CORONARY ARTERY OCCLUSION
     Dosage: 250MG
     Route: 048

REACTIONS (2)
  - GASTROINTESTINAL FUNGAL INFECTION [None]
  - HYPERTENSION [None]
